FAERS Safety Report 6146134-5 (Version None)
Quarter: 2009Q2

REPORT INFORMATION
  Report Type: 
  Country: None (occurrence: None)
  Receive Date: 20090407
  Receipt Date: 20090402
  Transmission Date: 20091009
  Serious: Yes (Life-Threatening, Hospitalization, Other)
  Sender: FDA-Public Use
  Company Number: DE-NOVOPROD-283008

PATIENT
  Age: 82 Year
  Sex: Male
  Weight: 77 kg

DRUGS (10)
  1. ACTRAPHANE 30 PENFILL [Suspect]
     Indication: TYPE 2 DIABETES MELLITUS
     Dosage: 56 IU, QD
     Route: 058
  2. ACTRAPID NOVOLET [Suspect]
     Indication: TYPE 2 DIABETES MELLITUS
     Dosage: 16 IU, QD
     Route: 058
  3. ATACAND [Concomitant]
     Dosage: 32 MG, QD
     Route: 048
     Dates: start: 20000101
  4. CARMEN [Concomitant]
     Dosage: 20 MG, QD
     Route: 048
     Dates: start: 20000101
  5. DOXAZOSIN MESYLATE [Concomitant]
     Dosage: 2 MG, QD
     Dates: start: 20000101
  6. HYDROCHLOROTHIAZIDE [Concomitant]
     Dosage: 25 MG, QD
     Route: 048
     Dates: start: 20000101
  7. MOXONIDINE [Concomitant]
     Dosage: .6 MG, QD
     Route: 048
     Dates: start: 20000101
  8. SIMVASTATIN [Concomitant]
     Dosage: 10 MG, QD
     Route: 048
     Dates: start: 20000101
  9. METOPROLOL SUCCINATE [Concomitant]
     Dosage: 95 MG, BID
     Route: 048
     Dates: start: 20000101
  10. BAYOTENSIN [Concomitant]
     Dosage: UNK, QD
     Dates: start: 20080429, end: 20080429

REACTIONS (2)
  - HYPERTENSION [None]
  - SHOCK HYPOGLYCAEMIC [None]
